FAERS Safety Report 24095549 (Version 1)
Quarter: 2024Q3

REPORT INFORMATION
  Report Type: Other
  Country: CA (occurrence: CA)
  Receive Date: 20240716
  Receipt Date: 20240716
  Transmission Date: 20241017
  Serious: Yes (Hospitalization, Other)
  Sender: APOTEX
  Company Number: CA-APOTEX-2024AP008062

PATIENT
  Sex: Male

DRUGS (11)
  1. PREDNISONE [Suspect]
     Active Substance: PREDNISONE
     Indication: Product used for unknown indication
     Dosage: 35 MILLIGRAM, QD
     Route: 065
  2. LEVOFLOXACIN [Suspect]
     Active Substance: LEVOFLOXACIN
     Indication: Testicular swelling
     Dosage: 500 MILLIGRAM, QD
     Route: 065
  3. LEVOFLOXACIN [Suspect]
     Active Substance: LEVOFLOXACIN
     Indication: Orchitis
     Dosage: UNK
     Route: 065
  4. FOLIC ACID [Suspect]
     Active Substance: FOLIC ACID
     Indication: Product used for unknown indication
     Dosage: UNK
     Route: 065
  5. ENTYVIO [Suspect]
     Active Substance: VEDOLIZUMAB
     Indication: Crohn^s disease
     Dosage: 300 MILLIGRAM
     Route: 042
  6. ENTYVIO [Suspect]
     Active Substance: VEDOLIZUMAB
     Dosage: 300 MILLIGRAM (1 EVERY 4 WEEKS)
     Route: 042
  7. PENTASA [Suspect]
     Active Substance: MESALAMINE
     Indication: Product used for unknown indication
     Dosage: UNK
     Route: 065
  8. IRON [Concomitant]
     Active Substance: IRON
     Indication: Product used for unknown indication
     Dosage: 500 MILLIGRAM, QD
     Route: 065
  9. BUTYLSCOPOLAMINE BROMIDE [Concomitant]
     Active Substance: BUTYLSCOPOLAMINE BROMIDE
     Indication: Product used for unknown indication
     Dosage: 10 MILLIGRAM
     Route: 065
  10. METHOTREXATE [Concomitant]
     Active Substance: METHOTREXATE
     Indication: Product used for unknown indication
     Dosage: 15 MILLIGRAM, Q.WK.
     Route: 065
  11. UROFOLLITROPIN [Concomitant]
     Active Substance: UROFOLLITROPIN
     Indication: Product used for unknown indication
     Dosage: 1 MILLIGRAM, Q.WK.
     Route: 065

REACTIONS (15)
  - Abdominal discomfort [Recovering/Resolving]
  - Anaemia [Recovering/Resolving]
  - Anal stenosis [Recovering/Resolving]
  - Cholangitis sclerosing [Recovering/Resolving]
  - Diarrhoea [Recovering/Resolving]
  - Faeces hard [Recovering/Resolving]
  - Gastrointestinal inflammation [Recovering/Resolving]
  - Haematochezia [Recovering/Resolving]
  - Interleukin level increased [Recovering/Resolving]
  - Lactose intolerance [Recovering/Resolving]
  - Off label use [Recovering/Resolving]
  - Pain [Recovering/Resolving]
  - Pyrexia [Recovering/Resolving]
  - Orchitis [Recovering/Resolving]
  - Treatment failure [Recovering/Resolving]
